FAERS Safety Report 8842755 (Version 4)
Quarter: 2014Q2

REPORT INFORMATION
  Report Type: Report from Study
  Country: JP (occurrence: JP)
  Receive Date: 20121016
  Receipt Date: 20140407
  Transmission Date: 20141212
  Serious: Yes (Other)
  Sender: FDA-Public Use
  Company Number: JP-VERTEX PHARMACEUTICAL INC.-2012-022916

PATIENT
  Age: 66 Year
  Sex: Male

DRUGS (10)
  1. VX-950 (TELAPREVIR) [Suspect]
     Indication: CHRONIC HEPATITIS C
     Dosage: 1500 MG, QD
     Route: 048
     Dates: start: 20120807, end: 20120827
  2. VX-950 (TELAPREVIR) [Suspect]
     Dosage: 750 MG, QD
     Route: 048
     Dates: start: 20120828, end: 20121030
  3. RIBAVIRIN [Suspect]
     Indication: CHRONIC HEPATITIS C
     Dosage: 600 MG, QD
     Route: 048
     Dates: start: 20120807, end: 20130124
  4. PEGINTERFERON ALFA-2B [Suspect]
     Indication: CHRONIC HEPATITIS C
     Dosage: 1.5 ?G/KG, QW
     Route: 058
     Dates: start: 20120807, end: 20120814
  5. PEGINTERFERON ALFA-2B [Suspect]
     Dosage: 0.67 ?G/KG, QW
     Route: 058
     Dates: start: 20120821, end: 20121016
  6. PEGINTERFERON ALFA-2B [Suspect]
     Dosage: 0.76 ?G/KG, QW
     Route: 058
     Dates: start: 20121023, end: 20121120
  7. PEGINTERFERON ALFA-2B [Suspect]
     Dosage: 0.84 ?G/KG, QW
     Route: 058
     Dates: start: 20121127
  8. URSO [Concomitant]
     Dosage: UNK
     Route: 048
     Dates: end: 20120925
  9. KARY UNI [Concomitant]
     Dosage: 6 DROPS IN BOTH EYES/DAY
     Route: 047
     Dates: start: 20121016, end: 20121120
  10. ALOSITOL [Concomitant]
     Dosage: 100 MG, QD
     Route: 048
     Dates: start: 20120806, end: 20130125

REACTIONS (3)
  - Neutrophil count decreased [Recovered/Resolved]
  - Neutrophil count decreased [Recovered/Resolved]
  - Platelet count decreased [Recovered/Resolved]
